FAERS Safety Report 6139561-3 (Version None)
Quarter: 2009Q2

REPORT INFORMATION
  Report Type: 
  Country: None (occurrence: None)
  Receive Date: 20090401
  Receipt Date: 20090325
  Transmission Date: 20091009
  Serious: Yes (Hospitalization, Other)
  Sender: FDA-Public Use
  Company Number: IL-NOVOPROD-284179

PATIENT
  Age: 37 Year
  Sex: Female

DRUGS (8)
  1. LEVEMIR [Suspect]
     Indication: INSULIN-REQUIRING TYPE 2 DIABETES MELLITUS
     Dates: start: 20090129
  2. NOVOLOG [Concomitant]
     Indication: INSULIN-REQUIRING TYPE 2 DIABETES MELLITUS
  3. METFORMIN [Concomitant]
     Dosage: UNK, TID
  4. ATENOLOL [Concomitant]
     Dosage: 25 MG, QD
  5. TRITACE COMP [Concomitant]
     Dosage: RAMIPRIL 2.5 MG + HYDROCHLOROTHIAZIDE 12.5 MG
  6. ATORVASTATIN CALCIUM [Concomitant]
     Dosage: 40 MG, QD
  7. CIPROFIBRATE [Concomitant]
     Dosage: 100 MG, QD
  8. AMLODIPINE [Concomitant]
     Dosage: 10 MG, QD

REACTIONS (2)
  - DEVICE FAILURE [None]
  - HYSTERECTOMY [None]
